FAERS Safety Report 7091667-0 (Version None)
Quarter: 2010Q4

REPORT INFORMATION
  Report Type: 
  Country: None (occurrence: None)
  Receive Date: 20101109
  Receipt Date: 20090826
  Transmission Date: 20110411
  Serious: No
  Sender: FDA-Public Use
  Company Number: US-KINGPHARMUSA00001-K200901054

PATIENT
  Sex: Female
  Weight: 55.329 kg

DRUGS (5)
  1. FLECTOR [Suspect]
     Indication: BACK PAIN
     Dosage: 1 PATCH, BID
     Route: 061
     Dates: start: 20090803, end: 20090819
  2. FLECTOR [Suspect]
     Dosage: 1 PATCH, BID
     Route: 061
     Dates: start: 20080825, end: 20090825
  3. AVAPRO [Concomitant]
     Indication: HYPERTENSION
     Dosage: 150 MG, QHS
  4. CARTIA XT [Concomitant]
     Indication: HYPERTENSION
     Dosage: UNK
  5. ACTONEL [Concomitant]
     Indication: OSTEOPOROSIS
     Dosage: 35 MG, QW

REACTIONS (1)
  - DIZZINESS [None]
